FAERS Safety Report 5416685-7 (Version None)
Quarter: 2007Q3

REPORT INFORMATION
  Report Type: 
  Country: None (occurrence: None)
  Receive Date: 20070816
  Receipt Date: 20070801
  Transmission Date: 20080115
  Serious: Yes (Life-Threatening, Hospitalization, Other)
  Sender: FDA-Public Use
  Company Number: GB-AMGEN-UK238757

PATIENT
  Age: 39 Year
  Sex: Male

DRUGS (8)
  1. FILGRASTIM [Suspect]
     Indication: CHEMOTHERAPY
     Dates: start: 20070314, end: 20070510
  2. NEUPOGEN [Suspect]
     Indication: CHEMOTHERAPY
     Route: 058
     Dates: start: 20070308
  3. CYCLOPHOSPHAMIDE [Suspect]
     Route: 042
     Dates: start: 20070308
  4. RITUXIMAB [Suspect]
     Route: 042
     Dates: start: 20070308, end: 20070424
  5. METHOTREXATE [Suspect]
     Route: 037
     Dates: start: 20070308
  6. PREDNISOLONE [Concomitant]
     Route: 048
     Dates: start: 20070308
  7. RANITIDINE [Concomitant]
     Route: 048
     Dates: start: 20070308
  8. VINCRISTINE [Concomitant]
     Route: 042
     Dates: start: 20070309

REACTIONS (2)
  - PNEUMONITIS [None]
  - PULMONARY FIBROSIS [None]
